FAERS Safety Report 8760529 (Version 2)
Quarter: 2013Q1

REPORT INFORMATION
  Report Type: Spontaneous
  Country: FR (occurrence: None)
  Receive Date: 20120820
  Receipt Date: 20121226
  Transmission Date: 20140127
  Serious: Yes (Disabling)
  Sender: FDA-Public Use
  Company Number: DSA_58936_2012

PATIENT
  Age: 78 Year
  Sex: Female

DRUGS (7)
  1. FLAGYL [Suspect]
     Indication: PSEUDOMEMBRANOUS COLITIS
     Route: 042
     Dates: start: 20120125, end: 20120130
  2. CARDENSIEL [Concomitant]
  3. DIGOXINE [Concomitant]
  4. LASILIX /0032601/ [Concomitant]
  5. LEVOTHYROX [Concomitant]
  6. EUPANTOL [Concomitant]
  7. PREVISCAN /00789001/ [Concomitant]

REACTIONS (4)
  - Peripheral sensory neuropathy [None]
  - Paraesthesia [None]
  - Pain [None]
  - Allodynia [None]
